FAERS Safety Report 19251993 (Version 1)
Quarter: 2021Q2

REPORT INFORMATION
  Report Type: Spontaneous
  Country: US (occurrence: US)
  Receive Date: 20210512
  Receipt Date: 20210512
  Transmission Date: 20210717
  Serious: No
  Sender: FDA-Public Use
  Company Number: None

PATIENT
  Age: 39 Year
  Sex: Female

DRUGS (1)
  1. NAPROXEN. [Suspect]
     Active Substance: NAPROXEN
     Indication: PAIN
     Dosage: ?          OTHER FREQUENCY:X 1;?
     Route: 048
     Dates: start: 20210511, end: 20210511

REACTIONS (3)
  - Urticaria [None]
  - Pruritus [None]
  - Pharyngeal swelling [None]

NARRATIVE: CASE EVENT DATE: 20210511
